FAERS Safety Report 9034923 (Version 1)
Quarter: 2013Q1

REPORT INFORMATION
  Report Type: Spontaneous
  Country: JP (occurrence: None)
  Receive Date: 20130116
  Receipt Date: 20130116
  Transmission Date: 20140127
  Serious: Yes (Other)
  Sender: FDA-Public Use
  Company Number: JP-2011-12970

PATIENT
  Age: 61 Year
  Sex: Female
  Weight: 42.2 kg

DRUGS (6)
  1. PLETAAL (CILOSTAZOL) TABLET [Suspect]
     Indication: PERIPHERAL ARTERIAL OCCLUSIVE DISEASE
     Route: 048
     Dates: start: 19890309, end: 19901122
  2. EA (EA) [Concomitant]
     Route: 048
     Dates: start: 19880331, end: 19901122
  3. DIGITOXIN CHUGAI (DIGITOXIN) [Concomitant]
  4. ALDACTONE A (SPIRONOLACTONE) [Concomitant]
  5. LASIX (FUROSEMIDE) [Concomitant]
  6. EPADEL (ETHYL LCOSAPENTATE) [Concomitant]

REACTIONS (4)
  - Cardiac failure [None]
  - Hepatic function abnormal [None]
  - Aspartate aminotransferase increased [None]
  - Alanine aminotransferase increased [None]
